FAERS Safety Report 8617617 (Version 3)
Quarter: 2012Q4

REPORT INFORMATION
  Report Type: Report from Study
  Country: JP (occurrence: JP)
  Receive Date: 20120615
  Receipt Date: 20121105
  Transmission Date: 20130627
  Serious: Yes (Life-Threatening, Hospitalization, Other)
  Sender: FDA-Public Use
  Company Number: JP-ROCHE-642046

PATIENT
  Age: 57 Year
  Sex: Male
  Weight: 83.2 kg

DRUGS (13)
  1. TOCILIZUMAB [Suspect]
     Indication: RHEUMATOID ARTHRITIS
     Route: 041
     Dates: start: 20081010, end: 20081010
  2. TOCILIZUMAB [Suspect]
     Route: 041
     Dates: start: 20081111, end: 20081111
  3. TOCILIZUMAB [Suspect]
     Route: 041
     Dates: start: 20081212, end: 20081212
  4. TOCILIZUMAB [Suspect]
     Route: 041
     Dates: start: 20090109, end: 20090109
  5. TOCILIZUMAB [Suspect]
     Route: 041
     Dates: start: 20090206, end: 20090206
  6. TOCILIZUMAB [Suspect]
     Route: 041
     Dates: start: 20090306, end: 20090306
  7. TOCILIZUMAB [Suspect]
     Route: 041
     Dates: start: 20090403, end: 20090403
  8. TOCILIZUMAB [Suspect]
     Route: 041
     Dates: start: 20090522, end: 20090522
  9. PREDONINE [Suspect]
     Indication: RHEUMATOID ARTHRITIS
     Route: 048
  10. URSO [Concomitant]
     Dosage: ORAL FORMULATION NOS
     Route: 048
  11. TAGAMET [Concomitant]
     Indication: PROPHYLAXIS
     Dosage: Dosage is uncertain
     Route: 048
  12. HYPEN [Concomitant]
     Indication: RHEUMATOID ARTHRITIS
     Route: 048
  13. AMARYL [Concomitant]
     Indication: GLUCOSE TOLERANCE IMPAIRED
     Dosage: Dosage is uncertain
     Route: 048

REACTIONS (7)
  - Septic shock [Recovered/Resolved]
  - Anal abscess [Unknown]
  - Compression fracture [Unknown]
  - Paraparesis [Unknown]
  - Disuse syndrome [Unknown]
  - Rash generalised [Not Recovered/Not Resolved]
  - Cellulitis [Recovering/Resolving]
